FAERS Safety Report 7745992-8 (Version None)
Quarter: 2011Q3

REPORT INFORMATION
  Report Type: 
  Country: None (occurrence: None)
  Receive Date: 20110913
  Receipt Date: 20110824
  Transmission Date: 20111222
  Serious: Yes (Other)
  Sender: FDA-Public Use
  Company Number: US-ELI_LILLY_AND_COMPANY-US201108008159

PATIENT
  Age: 15 Year
  Sex: Male

DRUGS (5)
  1. REMERON [Concomitant]
  2. CYMBALTA [Suspect]
     Dosage: UNK
     Dates: start: 20110701
  3. TRILEPTAL [Concomitant]
  4. LITHIUM [Concomitant]
  5. AMANTADINE HCL [Concomitant]

REACTIONS (2)
  - OFF LABEL USE [None]
  - BLOOD ALKALINE PHOSPHATASE INCREASED [None]
